FAERS Safety Report 13269835 (Version 1)
Quarter: 2017Q1

REPORT INFORMATION
  Report Type: Spontaneous
  Country: JP (occurrence: JP)
  Receive Date: 20170224
  Receipt Date: 20170224
  Transmission Date: 20170428
  Serious: Yes (Death, Hospitalization)
  Sender: FDA-Public Use
  Company Number: JP-PFIZER INC-2016133907

PATIENT
  Age: 65 Year
  Sex: Male

DRUGS (2)
  1. AXITINIB [Suspect]
     Active Substance: AXITINIB
     Dosage: 14 MG, DAILY
  2. AXITINIB [Suspect]
     Active Substance: AXITINIB
     Dosage: 10 MG, UNK
     Dates: start: 201402

REACTIONS (2)
  - Diarrhoea [Fatal]
  - Palmar-plantar erythrodysaesthesia syndrome [Unknown]
